FAERS Safety Report 7367293-2 (Version None)
Quarter: 2011Q1

REPORT INFORMATION
  Report Type: 
  Country: None (occurrence: None)
  Receive Date: 20110322
  Receipt Date: 20110314
  Transmission Date: 20110831
  Serious: Yes (Life-Threatening, Hospitalization, Disabling, Other)
  Sender: FDA-Public Use
  Company Number: GB-MERCK-1102GBR00060

PATIENT
  Age: 28 Year
  Sex: Male
  Weight: 68 kg

DRUGS (6)
  1. EFAVIRENZ [Concomitant]
     Indication: HIV INFECTION
     Route: 065
     Dates: start: 20091231
  2. ISENTRESS [Suspect]
     Indication: HIV INFECTION
     Route: 048
     Dates: start: 20101007, end: 20110217
  3. EMTRICITABINE AND TENOFOVIR DISOPROXIL FUMARATE [Concomitant]
     Indication: HIV INFECTION
     Route: 065
     Dates: start: 20091231
  4. PROPRANOLOL HYDROCHLORIDE [Concomitant]
     Indication: HEPATIC CIRRHOSIS
     Route: 065
     Dates: start: 20050101
  5. THIAMINE [Concomitant]
     Indication: HEPATIC CIRRHOSIS
     Route: 065
     Dates: start: 20050101
  6. VITAMIN B COMPLEX [Concomitant]
     Indication: HEPATIC CIRRHOSIS
     Route: 065
     Dates: start: 20050101

REACTIONS (1)
  - HEPATIC CIRRHOSIS [None]
